FAERS Safety Report 6366800-6 (Version None)
Quarter: 2009Q3

REPORT INFORMATION
  Report Type: 
  Country: None (occurrence: None)
  Receive Date: 20090921
  Receipt Date: 20090910
  Transmission Date: 20100115
  Serious: Yes (Hospitalization)
  Sender: FDA-Public Use
  Company Number: IT-WATSON-2009-07476

PATIENT
  Age: 28 Year
  Sex: Male

DRUGS (3)
  1. HALOPERIDOL (WATSON LABORATORIES) [Suspect]
     Indication: PSYCHOTIC DISORDER
     Dosage: UNK
  2. CARBAMAZEPINE [Suspect]
     Indication: DRUG USE FOR UNKNOWN INDICATION
     Dosage: UNK
  3. PHENOTHIAZINE [Suspect]
     Indication: PSYCHOTIC DISORDER
     Dosage: UNK

REACTIONS (1)
  - INTUSSUSCEPTION [None]
